FAERS Safety Report 5273078-3 (Version None)
Quarter: 2007Q1

REPORT INFORMATION
  Report Type: 
  Country: None (occurrence: None)
  Receive Date: 20070316
  Receipt Date: 20070302
  Transmission Date: 20070707
  Serious: Yes (Life-Threatening)
  Sender: FDA-Public Use
  Company Number: 2007SP004231

PATIENT
  Age: 7 Year
  Sex: Male
  Weight: 17 kg

DRUGS (2)
  1. TEMODAL [Suspect]
     Indication: NEUROBLASTOMA RECURRENT
     Dosage: 100 MG;QD;PO
     Route: 048
     Dates: start: 20070219, end: 20070221
  2. TOPOTECIN [Concomitant]

REACTIONS (4)
  - METASTASES TO STOMACH [None]
  - NAUSEA [None]
  - TUMOUR HAEMORRHAGE [None]
  - VOMITING [None]
